FAERS Safety Report 6124460-3 (Version None)
Quarter: 2009Q1

REPORT INFORMATION
  Report Type: 
  Country: None (occurrence: None)
  Receive Date: 20090319
  Receipt Date: 20090309
  Transmission Date: 20090719
  Serious: Yes (Hospitalization)
  Sender: FDA-Public Use
  Company Number: US-ALLERGAN-0801059US

PATIENT
  Sex: Female

DRUGS (11)
  1. BOTOX [Suspect]
     Indication: TORTICOLLIS
     Dosage: 100 UNITS, SINGLE
     Route: 030
     Dates: start: 20080110, end: 20080110
  2. LIPITOR [Concomitant]
     Indication: BLOOD CHOLESTEROL
  3. MEURLNTIN [Concomitant]
     Indication: DRUG USE FOR UNKNOWN INDICATION
  4. FOSAMAX [Concomitant]
     Indication: DRUG USE FOR UNKNOWN INDICATION
  5. WELLBUTRIN [Concomitant]
     Indication: DRUG USE FOR UNKNOWN INDICATION
  6. EFFEXOR [Concomitant]
     Indication: DRUG USE FOR UNKNOWN INDICATION
  7. THYROID TAB [Concomitant]
     Indication: DRUG USE FOR UNKNOWN INDICATION
  8. PROMETRIUM [Concomitant]
  9. PAMELOR [Concomitant]
     Indication: DRUG USE FOR UNKNOWN INDICATION
  10. VIVELLE [Concomitant]
     Indication: DRUG USE FOR UNKNOWN INDICATION
     Dosage: PATCH
  11. NEURONTIN [Concomitant]
     Indication: NECK PAIN

REACTIONS (1)
  - ILEUS PARALYTIC [None]
